FAERS Safety Report 4681867-9 (Version None)
Quarter: 2005Q2

REPORT INFORMATION
  Report Type: 
  Country: None (occurrence: None)
  Receive Date: 20050602
  Receipt Date: 20050519
  Transmission Date: 20051028
  Serious: Yes (Other)
  Sender: FDA-Public Use
  Company Number: 2004US001225

PATIENT
  Sex: Female

DRUGS (17)
  1. AMBISOME [Suspect]
     Dosage: IV NOS; RESPIRATORY
     Route: 042
  2. CYCLOSPORINE [Concomitant]
  3. CASPOFUNGIN (CASPOFUNGIN) [Concomitant]
  4. HEPARTIN [Concomitant]
  5. DOPAMNE (DOPAMINE) [Concomitant]
  6. PREDNISONE [Concomitant]
  7. ONDANSETRON HCL [Concomitant]
  8. FUROSEMIDE [Concomitant]
  9. MEROPENEM (MEROPENEM) [Concomitant]
  10. INSULIN [Concomitant]
  11. ACYCLOVIR [Concomitant]
  12. KETOROLAC [Concomitant]
  13. DEFIBROTIDE (DEFIBROTIDE) [Concomitant]
  14. TRAMADOL HCL [Concomitant]
  15. OMEPRAZOLE [Concomitant]
  16. NORAMIDOPRINE METHANSULFONATE SODIUM (METAMIZOLE SODIUM) [Concomitant]
  17. COTRIMOSSAZOLO [Concomitant]

REACTIONS (6)
  - CONVULSION [None]
  - DISEASE RECURRENCE [None]
  - HEPATOMEGALY [None]
  - METABOLIC SYNDROME [None]
  - MITOCHONDRIAL TOXICITY [None]
  - TRANSAMINASES INCREASED [None]
